FAERS Safety Report 8434668-X (Version None)
Quarter: 2012Q2

REPORT INFORMATION
  Report Type: 
  Country: None (occurrence: None)
  Receive Date: 20120323
  Receipt Date: 20110919
  Transmission Date: 20120825
  Serious: Yes (Hospitalization)
  Sender: FDA-Public Use
  Company Number: 163-21880-11071106

PATIENT
  Age: 45 Year
  Sex: Male
  Weight: 108.8633 kg

DRUGS (7)
  1. VELCADE [Suspect]
     Indication: MULTIPLE MYELOMA
     Dosage: 1.3 MG/M2, DAYS 1, 4,  8, 11, SC
     Route: 058
     Dates: start: 20110623, end: 20110711
  2. DEXAMETHASONE [Concomitant]
  3. REVLIMID [Suspect]
     Indication: MULTIPLE MYELOMA
     Dosage: 25 MG, 1 IN 1 D, PO
     Route: 048
     Dates: start: 20110623, end: 20110701
  4. LOW DOSE ASA (ACETYLSALICYLIC ACID) [Concomitant]
  5. BACTRIM [Concomitant]
  6. VALTREX [Concomitant]
  7. LISINOPRIL [Concomitant]

REACTIONS (3)
  - URTICARIA [None]
  - PYREXIA [None]
  - RASH PRURITIC [None]
